FAERS Safety Report 5410130-3 (Version None)
Quarter: 2007Q3

REPORT INFORMATION
  Report Type: 
  Country: None (occurrence: None)
  Receive Date: 20070809
  Receipt Date: 20070730
  Transmission Date: 20080115
  Serious: Yes (Other)
  Sender: FDA-Public Use
  Company Number: US-SHR-US-2007-018430

PATIENT
  Age: 49 Year
  Sex: Female
  Weight: 74.376 kg

DRUGS (5)
  1. BETASERON [Suspect]
     Indication: RELAPSING-REMITTING MULTIPLE SCLEROSIS
     Dosage: 8 MIU, EVERY 2D
     Route: 058
     Dates: start: 20070122
  2. LEXAPRO [Concomitant]
  3. REQUIP [Concomitant]
  4. CLONIDINE [Concomitant]
  5. ASCORBIC ACID [Concomitant]

REACTIONS (4)
  - DIARRHOEA [None]
  - LOSS OF CONSCIOUSNESS [None]
  - VIRAL INFECTION [None]
  - VOMITING [None]
